FAERS Safety Report 6050578-X (Version None)
Quarter: 2009Q1

REPORT INFORMATION
  Report Type: 
  Country: None (occurrence: None)
  Receive Date: 20090126
  Receipt Date: 20090114
  Transmission Date: 20090719
  Serious: Yes (Hospitalization)
  Sender: FDA-Public Use
  Company Number: JP-PFIZER INC-2009158808

PATIENT

DRUGS (2)
  1. SULPERAZON [Suspect]
     Indication: BILE DUCT STONE
     Dosage: UNK
     Route: 042
     Dates: start: 20090114, end: 20090114
  2. ALL OTHER THERAPEUTIC PRODUCTS [Concomitant]

REACTIONS (1)
  - ANAPHYLACTIC SHOCK [None]
